FAERS Safety Report 24148030 (Version 1)
Quarter: 2024Q3

REPORT INFORMATION
  Report Type: Spontaneous
  Country: US (occurrence: None)
  Receive Date: 20240728
  Receipt Date: 20240728
  Transmission Date: 20241017
  Serious: Yes (Other)
  Sender: Public
  Company Number: None

PATIENT
  Age: 50 Year
  Weight: 72 kg

DRUGS (1)
  1. EMGALITY [Suspect]
     Active Substance: GALCANEZUMAB-GNLM
     Indication: Migraine
     Dosage: OTHER FREQUENCY : ONE MONTHLY INJECT;?
     Route: 030
     Dates: start: 20211227, end: 20220826

REACTIONS (1)
  - Vertigo positional [None]

NARRATIVE: CASE EVENT DATE: 20220725
